FAERS Safety Report 10755772 (Version 1)
Quarter: 2015Q1

REPORT INFORMATION
  Report Type: Spontaneous
  Country: US (occurrence: None)
  Receive Date: 20150123
  Receipt Date: 20150123
  Transmission Date: 20150721
  Serious: No
  Sender: FDA-Public Use
  Company Number: 2014TUS009814

PATIENT
  Sex: Male
  Weight: 61.2 kg

DRUGS (1)
  1. ENTYVIO [Suspect]
     Active Substance: VEDOLIZUMAB
     Indication: CROHN^S DISEASE
     Dosage: 300 MG, FIRST DOSE, 2 X 4.8 ML STERILE H2O IN 250 ML NS
     Route: 042
     Dates: start: 20140925, end: 20140925

REACTIONS (2)
  - Accidental overdose [None]
  - No adverse event [None]

NARRATIVE: CASE EVENT DATE: 20140925
